FAERS Safety Report 23175168 (Version 2)
Quarter: 2023Q4

REPORT INFORMATION
  Report Type: Report from Study
  Country: US (occurrence: US)
  Receive Date: 20231112
  Receipt Date: 20231228
  Transmission Date: 20240110
  Serious: Yes (Hospitalization, Other)
  Sender: FDA-Public Use
  Company Number: US-ALXN-202310GLO000417US

PATIENT
  Age: 37 Year
  Sex: Female
  Weight: 66 kg

DRUGS (6)
  1. SOLIRIS [Suspect]
     Active Substance: ECULIZUMAB
     Indication: Atypical haemolytic uraemic syndrome
     Dosage: 1200 MILLIGRAM
     Route: 042
     Dates: start: 20200703
  2. DEXTROSE [Concomitant]
     Active Substance: DEXTROSE\DEXTROSE MONOHYDRATE
     Indication: Diabetic ketoacidosis
     Dosage: 15 GRAM, SINGLE
     Route: 042
     Dates: start: 20230303, end: 20230303
  3. GLUCAGON [Concomitant]
     Active Substance: GLUCAGON\GLUCAGON HYDROCHLORIDE\WATER
     Indication: Diabetic ketoacidosis
     Dosage: 1 GRAM, SINGLE
     Route: 042
     Dates: start: 20230303, end: 20230303
  4. INSULIN NOS [Concomitant]
     Active Substance: INSULIN NOS
     Indication: Diabetic ketoacidosis
     Dosage: 100 INTERNATIONAL UNIT, SINGLE
     Route: 042
     Dates: start: 20230303, end: 20230303
  5. ZOFRAN [Concomitant]
     Active Substance: ONDANSETRON HYDROCHLORIDE
     Indication: Diabetic ketoacidosis
     Dosage: 4 MILLIGRAM, PRN
     Route: 042
     Dates: start: 20230303, end: 20230306
  6. LANTUS [Concomitant]
     Active Substance: INSULIN GLARGINE
     Indication: Diabetic ketoacidosis
     Dosage: 10 INTERNATIONAL UNIT, TID
     Route: 062
     Dates: start: 20230304, end: 20230306

REACTIONS (1)
  - Pancreatitis acute [Recovered/Resolved]

NARRATIVE: CASE EVENT DATE: 20230401
